FAERS Safety Report 12006651 (Version 1)
Quarter: 2016Q1

REPORT INFORMATION
  Report Type: Spontaneous
  Country: US (occurrence: US)
  Receive Date: 20160204
  Receipt Date: 20160204
  Transmission Date: 20160526
  Serious: No
  Sender: FDA-Public Use
  Company Number: US-GLAXOSMITHKLINE-US2016014459

PATIENT
  Sex: Female

DRUGS (1)
  1. ADVAIR DISKUS [Suspect]
     Active Substance: FLUTICASONE PROPIONATE\SALMETEROL XINAFOATE
     Indication: BRONCHITIS
     Dosage: UNK
     Route: 055
     Dates: start: 20160128

REACTIONS (4)
  - Mucous membrane disorder [Not Recovered/Not Resolved]
  - Drug ineffective [Unknown]
  - Dysgeusia [Not Recovered/Not Resolved]
  - Cough [Not Recovered/Not Resolved]
